FAERS Safety Report 5231676-7 (Version None)
Quarter: 2007Q1

REPORT INFORMATION
  Report Type: 
  Country: None (occurrence: None)
  Receive Date: 20061201
  Receipt Date: 20060926
  Transmission Date: 20070707
  Serious: No
  Sender: FDA-Public Use
  Company Number: 2006PV021996

PATIENT
  Age: 56 Year
  Sex: Female
  Weight: 131.5431 kg

DRUGS (4)
  1. BYETTA [Suspect]
     Indication: DIABETES MELLITUS NON-INSULIN-DEPENDENT
     Dosage: 5 MCG;BID;SC
     Route: 058
     Dates: start: 20060906
  2. METFORMIN HCL [Concomitant]
  3. GLYBURIDE [Concomitant]
  4. INSULIN [Concomitant]

REACTIONS (4)
  - ARTHRALGIA [None]
  - ERYTHEMA [None]
  - GOUT [None]
  - OEDEMA PERIPHERAL [None]
